FAERS Safety Report 7605099-7 (Version None)
Quarter: 2011Q3

REPORT INFORMATION
  Report Type: 
  Country: None (occurrence: None)
  Receive Date: 20110713
  Receipt Date: 20101217
  Transmission Date: 20111222
  Serious: Yes (Death, Other)
  Sender: FDA-Public Use
  Company Number: US-BAYER-200940415NA

PATIENT
  Age: 57 Year
  Sex: Female

DRUGS (18)
  1. PROTONIX [Concomitant]
     Dosage: 40 MG, QD
     Route: 048
  2. MILRINONE [Concomitant]
  3. FERROUS SULFATE TAB [Concomitant]
     Dosage: 324 MG, QD
     Route: 048
  4. DOBUTAMINE HCL [Concomitant]
  5. ACETYLSALICYLIC ACID SRT [Concomitant]
     Dosage: 325 MG, QD
     Route: 048
  6. LASIX [Concomitant]
     Dosage: 40 MG, QD
     Route: 048
     Dates: start: 20040705
  7. CARVEDILOL [Concomitant]
     Dosage: 12.5 MG, QD
     Route: 048
  8. ISOSORBIDE MONONITRATE [Concomitant]
     Dosage: 30 MG, QD
     Route: 048
  9. CLOPIDOGREL BISULFATE [Concomitant]
     Dosage: 75 MG, QD
     Route: 048
  10. LISINOPRIL [Concomitant]
     Dosage: 20 MG, QD
     Route: 048
  11. FUROSEMIDE [Concomitant]
     Dosage: 40 MG, QD
     Route: 048
  12. DOPAMINE HCL [Concomitant]
  13. TRASYLOL [Suspect]
     Indication: CORONARY ARTERY BYPASS
     Dosage: UNK
     Route: 042
     Dates: start: 20050316
  14. TRASYLOL [Suspect]
     Indication: MITRAL VALVE REPLACEMENT
  15. PANTOPRAZOLE SODIUM [Concomitant]
     Dosage: 40 MG, QD
     Route: 048
  16. ALTACE [Concomitant]
     Dosage: 2.5 MG, BID
     Route: 048
     Dates: start: 20040705
  17. SIMVASTATIN [Concomitant]
     Dosage: 80 MG, QD
     Route: 048
  18. GLUCOTROL XL [Concomitant]
     Dosage: 10 MG, QD
     Route: 048

REACTIONS (13)
  - ANXIETY [None]
  - PAIN [None]
  - DEATH [None]
  - MULTI-ORGAN FAILURE [None]
  - RENAL IMPAIRMENT [None]
  - ANHEDONIA [None]
  - RENAL FAILURE [None]
  - STRESS [None]
  - UNEVALUABLE EVENT [None]
  - FEAR [None]
  - RENAL INJURY [None]
  - EMOTIONAL DISTRESS [None]
  - INJURY [None]
